FAERS Safety Report 21316617 (Version 1)
Quarter: 2022Q3

REPORT INFORMATION
  Report Type: Spontaneous
  Country: US (occurrence: US)
  Receive Date: 20220911
  Receipt Date: 20220911
  Transmission Date: 20221026
  Serious: No
  Sender: FDA-Public Use
  Company Number: US-SA-SAC20220817001367

PATIENT
  Age: 33 Year
  Sex: Female

DRUGS (1)
  1. DUPIXENT [Suspect]
     Active Substance: DUPILUMAB
     Dosage: 600 MG, ON DAY 1
     Route: 058
     Dates: start: 202207, end: 202207

REACTIONS (2)
  - Rash macular [Unknown]
  - Dry eye [Unknown]

NARRATIVE: CASE EVENT DATE: 20220812
